FAERS Safety Report 4428071-7 (Version None)
Quarter: 2004Q3

REPORT INFORMATION
  Report Type: 
  Country: None (occurrence: None)
  Receive Date: 20040726
  Receipt Date: 20040317
  Transmission Date: 20050211
  Serious: No
  Sender: FDA-Public Use
  Company Number: USA030845780

PATIENT
  Age: 56 Year
  Sex: Female
  Weight: 59 kg

DRUGS (9)
  1. FORTEO [Suspect]
     Indication: OSTEOPOROSIS
     Dosage: 20 UG DAY
     Dates: start: 20030821
  2. PREMARIN (ESTROGRENS CONJUGATED) [Concomitant]
  3. ATIVAN [Concomitant]
  4. TRIAVIL [Concomitant]
  5. EFFEXOR [Concomitant]
  6. PREDNISONE [Concomitant]
  7. THEOPHYLLINE [Concomitant]
  8. PERPHENAZINE [Concomitant]
  9. AMITRIPTYLINE HYDROCHLORIDE [Concomitant]

REACTIONS (10)
  - ASTHENIA [None]
  - CONTUSION [None]
  - DIARRHOEA [None]
  - FATIGUE [None]
  - HYPERHIDROSIS [None]
  - NAUSEA [None]
  - NERVOUSNESS [None]
  - POLLAKIURIA [None]
  - SLUGGISHNESS [None]
  - VOMITING [None]
